FAERS Safety Report 10058240 (Version 5)
Quarter: 2014Q2

REPORT INFORMATION
  Report Type: Spontaneous
  Country: US (occurrence: US)
  Receive Date: 20140404
  Receipt Date: 20140429
  Transmission Date: 20141212
  Serious: Yes (Other)
  Sender: FDA-Public Use
  Company Number: US-JNJFOC-20140319022

PATIENT
  Age: 32 Year
  Sex: Male
  Weight: 71.3 kg

DRUGS (15)
  1. REMICADE [Suspect]
     Indication: CROHN^S DISEASE
     Dosage: WEEKS 0,2,6 AND THEN 6 WEEKS
     Route: 042
     Dates: start: 201312
  2. REMICADE [Suspect]
     Indication: CROHN^S DISEASE
     Dosage: WEEKS 0,2,6 AND THEN 6 WEEKS
     Route: 042
     Dates: start: 20071010, end: 201010
  3. ADALIMUMAB [Suspect]
     Indication: PRODUCT USED FOR UNKNOWN INDICATION
     Route: 065
     Dates: start: 201105, end: 201312
  4. AZATHIOPRIN [Suspect]
     Indication: CROHN^S DISEASE
     Route: 048
     Dates: start: 201107
  5. AZATHIOPRIN [Suspect]
     Indication: CROHN^S DISEASE
     Route: 048
     Dates: start: 200812, end: 200903
  6. BUDESONIDE [Suspect]
     Indication: PRODUCT USED FOR UNKNOWN INDICATION
     Route: 065
     Dates: start: 2007, end: 2007
  7. BUDESONIDE [Suspect]
     Indication: PRODUCT USED FOR UNKNOWN INDICATION
     Route: 065
     Dates: start: 201107, end: 2011
  8. BUDESONIDE [Suspect]
     Indication: PRODUCT USED FOR UNKNOWN INDICATION
     Route: 065
     Dates: start: 201007, end: 2010
  9. PREDNISONE [Suspect]
     Indication: PRODUCT USED FOR UNKNOWN INDICATION
     Route: 065
     Dates: start: 20131009, end: 201310
  10. PREDNISONE [Suspect]
     Indication: PRODUCT USED FOR UNKNOWN INDICATION
     Route: 065
     Dates: start: 200709, end: 2007
  11. OXYCODONE [Concomitant]
     Indication: PAIN
     Dosage: AS NECESSARY, 5-10 MG
     Route: 048
     Dates: start: 20140316
  12. AMBIEN [Concomitant]
     Indication: INSOMNIA
     Route: 048
     Dates: start: 2012
  13. BACTRIM DS [Concomitant]
     Indication: INTESTINAL FISTULA
     Route: 048
     Dates: start: 201401
  14. ERGOCALCIFEROL [Concomitant]
     Indication: VITAMIN D DEFICIENCY
     Route: 048
     Dates: start: 2012
  15. IRON SUCROSE [Concomitant]
     Indication: IRON DEFICIENCY
     Route: 042
     Dates: start: 2012

REACTIONS (1)
  - Basal cell carcinoma [Unknown]
